FAERS Safety Report 17618854 (Version 4)
Quarter: 2021Q2

REPORT INFORMATION
  Report Type: Report from Study
  Country: HK (occurrence: HK)
  Receive Date: 20200402
  Receipt Date: 20210420
  Transmission Date: 20210716
  Serious: Yes (Hospitalization)
  Sender: FDA-Public Use
  Company Number: HK-GLAXOSMITHKLINE-HK2020GSK054834

PATIENT
  Age: 53 Year
  Sex: Male
  Weight: 67.1 kg

DRUGS (6)
  1. NIRAPARIB [Suspect]
     Active Substance: NIRAPARIB
     Indication: GASTRIC CANCER
     Dosage: 200 MG, QD
     Route: 048
     Dates: start: 20200203, end: 20200324
  2. TRAVOPROST. [Concomitant]
     Active Substance: TRAVOPROST
     Indication: PHOTOPSIA
     Dosage: 1 DF (1 DROP IN LEFT EYE), Z (IN EVENING)
     Route: 047
     Dates: start: 20200121
  3. ACTIFED (PSEUDOEPHEDRINE HYDROCHLORIDE+TRIPROLIDINE HYDROCHLORIDE) [Concomitant]
     Indication: PROPHYLAXIS
     Dosage: UNK UNK, TID
     Dates: start: 20200302
  4. TEBOTELIMAB. [Suspect]
     Active Substance: TEBOTELIMAB
     Indication: GASTRIC CANCER
     Dosage: 120 MG, CYC (Q2W)
     Route: 042
     Dates: start: 20200203
  5. ACTIFED (PSEUDOEPHEDRINE HYDROCHLORIDE+TRIPROLIDINE HYDROCHLORIDE) [Concomitant]
     Indication: COUGH
  6. CARBOXYMETHYLCELLULOSE SODIUM. [Concomitant]
     Active Substance: CARBOXYMETHYLCELLULOSE SODIUM
     Indication: PHOTOPSIA
     Dosage: 1 DF(1DROP IN LEFT EYE), QID
     Route: 047
     Dates: start: 20200121

REACTIONS (2)
  - Condition aggravated [Recovered/Resolved]
  - Blood creatinine increased [Recovered/Resolved]

NARRATIVE: CASE EVENT DATE: 20200217
